FAERS Safety Report 14602559 (Version 4)
Quarter: 2018Q3

REPORT INFORMATION
  Report Type: Spontaneous
  Country: US (occurrence: US)
  Receive Date: 20180306
  Receipt Date: 20180725
  Transmission Date: 20181010
  Serious: Yes (Other)
  Sender: FDA-Public Use
  Company Number: US-PFIZER INC-2018093254

PATIENT
  Age: 45 Year
  Sex: Female

DRUGS (4)
  1. NORTRIPTYLINE [Concomitant]
     Active Substance: NORTRIPTYLINE
     Indication: PAIN
  2. NORTRIPTYLINE [Concomitant]
     Active Substance: NORTRIPTYLINE
     Indication: DEPRESSION
     Dosage: 75 MG, 1X/DAY (Q PM)
     Dates: start: 201504
  3. NORTRIPTYLINE [Concomitant]
     Active Substance: NORTRIPTYLINE
     Indication: SLEEP DISORDER
  4. LYRICA [Suspect]
     Active Substance: PREGABALIN
     Indication: GUILLAIN-BARRE SYNDROME
     Dosage: 225 MG, 2X/DAY (225 MG OF ONE IN THE MORNING AND ONE AT NIGHT)
     Route: 048
     Dates: start: 20160420

REACTIONS (6)
  - Disease recurrence [Unknown]
  - Burning sensation [Unknown]
  - Product use in unapproved indication [Unknown]
  - Paraesthesia [Unknown]
  - Guillain-Barre syndrome [Unknown]
  - Feeling hot [Unknown]

NARRATIVE: CASE EVENT DATE: 20160420
